FAERS Safety Report 6420745-1 (Version None)
Quarter: 2009Q4

REPORT INFORMATION
  Report Type: 
  Country: None (occurrence: None)
  Receive Date: 20091030
  Receipt Date: 20091020
  Transmission Date: 20100525
  Serious: Yes (Hospitalization)
  Sender: FDA-Public Use
  Company Number: US-BIOGENIDEC-2007BI007552

PATIENT
  Age: 45 Year
  Sex: Female

DRUGS (3)
  1. AVONEX [Suspect]
     Indication: MULTIPLE SCLEROSIS
     Route: 030
     Dates: start: 19971001, end: 20080801
  2. AVONEX [Suspect]
     Route: 030
     Dates: start: 20090801
  3. BC POWDER [Concomitant]
     Indication: PREMEDICATION

REACTIONS (9)
  - BREAST CANCER [None]
  - COGNITIVE DISORDER [None]
  - GAIT DISTURBANCE [None]
  - INFLUENZA LIKE ILLNESS [None]
  - MEMORY IMPAIRMENT [None]
  - NAUSEA [None]
  - NIGHT BLINDNESS [None]
  - NUCLEAR MAGNETIC RESONANCE IMAGING ABNORMAL [None]
  - VISUAL ACUITY REDUCED [None]
